FAERS Safety Report 25174383 (Version 1)
Quarter: 2025Q2

REPORT INFORMATION
  Report Type: Report from Study
  Country: US (occurrence: US)
  Receive Date: 20250408
  Receipt Date: 20250408
  Transmission Date: 20250717
  Serious: Yes (Other)
  Sender: TAKEDA
  Company Number: US-TAKEDA-2024TUS078854

PATIENT
  Sex: Male

DRUGS (18)
  1. IXAZOMIB [Suspect]
     Active Substance: IXAZOMIB
     Indication: Plasma cell myeloma
  2. PREDNISONE [Suspect]
     Active Substance: PREDNISONE
     Indication: Product used for unknown indication
  3. REVLIMID [Concomitant]
     Active Substance: LENALIDOMIDE
  4. AMLODIPINE BESYLATE [Concomitant]
     Active Substance: AMLODIPINE BESYLATE
  5. ASPIRIN [Concomitant]
     Active Substance: ASPIRIN
  6. BYSTOLIC [Concomitant]
     Active Substance: NEBIVOLOL HYDROCHLORIDE
  7. CRESTOR [Concomitant]
     Active Substance: ROSUVASTATIN CALCIUM
  8. DARZALEX [Concomitant]
     Active Substance: DARATUMUMAB
  9. FERROUS SULFATE [Concomitant]
     Active Substance: FERROUS SULFATE
  10. NORVASC [Concomitant]
     Active Substance: AMLODIPINE BESYLATE
  11. RANOLAZINE [Concomitant]
     Active Substance: RANOLAZINE
  12. ZETIA [Concomitant]
     Active Substance: EZETIMIBE
  13. METFORMIN HYDROCHLORIDE [Concomitant]
     Active Substance: METFORMIN HYDROCHLORIDE
  14. VOQUEZNA [Concomitant]
     Active Substance: VONOPRAZAN FUMARATE
  15. OSELTAMIVIR PHOSPHATE [Concomitant]
     Active Substance: OSELTAMIVIR PHOSPHATE
  16. AZITHROMYCIN [Concomitant]
     Active Substance: AZITHROMYCIN
  17. FLUZONE [Concomitant]
     Active Substance: INFLUENZA A VIRUS A/CALIFORNIA/7/2009 X-179A (H1N1) ANTIGEN (FORMALDEHYDE INACTIVATED)\INFLUENZA A V
  18. Comirnaty [Concomitant]

REACTIONS (9)
  - Plasmacytoma [Unknown]
  - Plasma cell myeloma [Unknown]
  - Blood glucose increased [Unknown]
  - Neuropathy peripheral [Unknown]
  - Chest pain [Unknown]
  - Dysphagia [Unknown]
  - Neck pain [Unknown]
  - Dyspnoea [Unknown]
  - Arthralgia [Unknown]
